FAERS Safety Report 15327798 (Version 1)
Quarter: 2018Q3

REPORT INFORMATION
  Report Type: Spontaneous
  Country: US (occurrence: US)
  Receive Date: 20180828
  Receipt Date: 20180828
  Transmission Date: 20181010
  Serious: No
  Sender: FDA-Public Use
  Company Number: US-ROCHE-2110869

PATIENT
  Age: 72 Year
  Sex: Female
  Weight: 62.65 kg

DRUGS (2)
  1. ALECENSA [Suspect]
     Active Substance: ALECTINIB HYDROCHLORIDE
     Indication: LUNG NEOPLASM MALIGNANT
     Dosage: 10 PILLS TOTAL ;ONGOING: YES
     Route: 065
     Dates: start: 2016
  2. MUCINEX 12 HR EXTENDED RELEASE [Concomitant]
     Dosage: NO
     Route: 065
     Dates: start: 20180415

REACTIONS (2)
  - Lower respiratory tract congestion [Recovering/Resolving]
  - Bronchitis [Recovering/Resolving]

NARRATIVE: CASE EVENT DATE: 201804
